FAERS Safety Report 9225368 (Version 1)
Quarter: 2013Q2

REPORT INFORMATION
  Report Type: Spontaneous
  Country: FR (occurrence: FR)
  Receive Date: 20130411
  Receipt Date: 20130411
  Transmission Date: 20140414
  Serious: Yes (Death)
  Sender: FDA-Public Use
  Company Number: FR-BAXTER-2013BAX012705

PATIENT
  Age: 93 Year
  Sex: Female

DRUGS (2)
  1. CLINIMIX N9G15E, SOLUTION POUR PERFUSION EN POCHE BICOMPARTIMENT [Suspect]
     Indication: PARENTERAL NUTRITION
     Dosage: 1 BAG
     Route: 058
     Dates: start: 20130327, end: 20130327
  2. CLINIMIX N9G15E, SOLUTION POUR PERFUSION EN POCHE BICOMPARTIMENT [Suspect]
     Indication: DEHYDRATION

REACTIONS (2)
  - Death [Fatal]
  - Incorrect route of drug administration [Recovered/Resolved]
